FAERS Safety Report 21124448 (Version 1)
Quarter: 2022Q3

REPORT INFORMATION
  Report Type: Spontaneous
  Country: US (occurrence: US)
  Receive Date: 20220725
  Receipt Date: 20220725
  Transmission Date: 20221027
  Serious: Yes (Hospitalization, Other)
  Sender: FDA-Public Use
  Company Number: US-SUN PHARMACEUTICAL INDUSTRIES LTD-2022R1-345449

PATIENT
  Age: 14 Year
  Sex: Male

DRUGS (6)
  1. BUPROPION [Suspect]
     Active Substance: BUPROPION
     Indication: Depression
     Dosage: UNK
     Route: 065
  2. BUPROPION [Suspect]
     Active Substance: BUPROPION
     Indication: Anxiety
  3. FLUOXETINE [Suspect]
     Active Substance: FLUOXETINE HYDROCHLORIDE
     Indication: Anxiety
     Dosage: UNK
     Route: 065
  4. FLUOXETINE [Suspect]
     Active Substance: FLUOXETINE HYDROCHLORIDE
     Indication: Depression
  5. CYPROHEPTADINE [Suspect]
     Active Substance: CYPROHEPTADINE
     Indication: Anxiety
     Dosage: UNK
     Route: 065
  6. CYPROHEPTADINE [Suspect]
     Active Substance: CYPROHEPTADINE
     Indication: Depression

REACTIONS (6)
  - Toxicity to various agents [Unknown]
  - Aggression [Recovered/Resolved]
  - Generalised tonic-clonic seizure [Recovered/Resolved]
  - Disorganised speech [Recovered/Resolved]
  - Agitation [Recovered/Resolved]
  - Foreign body in gastrointestinal tract [Recovered/Resolved]
